FAERS Safety Report 4539500-2 (Version None)
Quarter: 2004Q4

REPORT INFORMATION
  Report Type: 
  Country: None (occurrence: None)
  Receive Date: 20041223
  Receipt Date: 20041210
  Transmission Date: 20050328
  Serious: No
  Sender: FDA-Public Use
  Company Number: 9500

PATIENT
  Age: 41 Year
  Sex: Female

DRUGS (6)
  1. MORPHINE [Suspect]
     Indication: GENERAL ANAESTHESIA
     Dosage: 7 MG TOTAL, IV
     Route: 042
     Dates: start: 20041122, end: 20041122
  2. ATRACURIUM BESYLATE [Suspect]
     Indication: GENERAL ANAESTHESIA
     Dosage: 40 MG TOTAL, IV
     Route: 042
     Dates: start: 20041122, end: 20041122
  3. ALFENTANIL [Concomitant]
  4. PROPOFOL [Concomitant]
  5. GENTAMICIN [Concomitant]
  6. ISOFLURANE [Concomitant]

REACTIONS (3)
  - BLOOD PRESSURE DECREASED [None]
  - ELECTROCARDIOGRAM ST SEGMENT DEPRESSION [None]
  - TACHYCARDIA [None]
